FAERS Safety Report 10233623 (Version 2)
Quarter: 2014Q2

REPORT INFORMATION
  Report Type: Spontaneous
  Country: AT (occurrence: AT)
  Receive Date: 20140612
  Receipt Date: 20140623
  Transmission Date: 20141212
  Serious: Yes (Life-Threatening, Other)
  Sender: FDA-Public Use
  Company Number: AT-GILEAD-2014-0104854

PATIENT
  Age: 44 Year
  Sex: Male
  Weight: 70 kg

DRUGS (5)
  1. VIREAD [Suspect]
     Indication: CHRONIC HEPATITIS B
     Dosage: 245 MG, QD, IN THE MORNING
     Route: 065
     Dates: start: 201402, end: 201404
  2. THYREX [Concomitant]
     Indication: THYROID SIZE DECREASED
     Dosage: 100 MICROGRAM, QD
     Route: 065
  3. ZANIPRIL [Concomitant]
     Indication: HYPERTENSION
     Dosage: UNK
     Route: 065
  4. TANATRIL [Concomitant]
     Dosage: 20 MG, QD
     Route: 065
  5. AMLODIPINE [Concomitant]
     Dosage: 5 MG, QD
     Route: 065

REACTIONS (6)
  - Anxiety [Recovered/Resolved]
  - Intestinal obstruction [Recovering/Resolving]
  - Suicidal ideation [Recovered/Resolved]
  - Mental disorder [Recovered/Resolved]
  - Liver function test abnormal [Unknown]
  - Nausea [Recovered/Resolved]
